FAERS Safety Report 4722627-X (Version None)
Quarter: 2005Q3

REPORT INFORMATION
  Report Type: 
  Country: None (occurrence: None)
  Receive Date: 20050722
  Receipt Date: 20050323
  Transmission Date: 20060218
  Serious: Yes (Life-Threatening)
  Sender: FDA-Public Use
  Company Number: US-MERCK-0503USA04129

PATIENT
  Age: 56 Year
  Sex: Female

DRUGS (7)
  1. VIOXX [Suspect]
     Indication: ARTHRITIS
     Route: 048
     Dates: start: 20000501
  2. VIOXX [Suspect]
     Route: 048
     Dates: start: 20011116, end: 20030501
  3. ZANTAC [Concomitant]
     Route: 065
  4. RANITIDINE [Concomitant]
     Route: 065
  5. MAXALT [Concomitant]
     Route: 065
  6. ALLEGRA [Concomitant]
     Route: 065
  7. ACULAR [Concomitant]
     Route: 065

REACTIONS (13)
  - ABDOMINAL DISTENSION [None]
  - ANXIETY [None]
  - BACK PAIN [None]
  - CHEST PAIN [None]
  - CHRONIC FATIGUE SYNDROME [None]
  - DEPRESSION [None]
  - DIARRHOEA [None]
  - DIZZINESS [None]
  - FIBROMYALGIA [None]
  - GASTROINTESTINAL PAIN [None]
  - NAUSEA [None]
  - PALPITATIONS [None]
  - VOMITING [None]
